FAERS Safety Report 4661294-0 (Version None)
Quarter: 2005Q2

REPORT INFORMATION
  Report Type: 
  Country: None (occurrence: None)
  Receive Date: 20050427
  Receipt Date: 20050119
  Transmission Date: 20051028
  Serious: No
  Sender: FDA-Public Use
  Company Number: WAES 0501USA03129

PATIENT
  Sex: Female

DRUGS (2)
  1. EMEND [Suspect]
     Dosage: PO
     Route: 048
  2. CORTICOSTEROIDS [Suspect]

REACTIONS (2)
  - EUPHORIC MOOD [None]
  - GENERAL SYMPTOM [None]
